FAERS Safety Report 17535102 (Version 1)
Quarter: 2020Q1

REPORT INFORMATION
  Report Type: Report from Study
  Country: US (occurrence: US)
  Receive Date: 20200312
  Receipt Date: 20200312
  Transmission Date: 20200409
  Serious: Yes (Other)
  Sender: FDA-Public Use
  Company Number: NVSC2020US070560

PATIENT
  Sex: Male

DRUGS (1)
  1. ENTRESTO [Suspect]
     Active Substance: SACUBITRIL\VALSARTAN
     Indication: CARDIAC OPERATION
     Dosage: UNK
     Route: 048
     Dates: start: 2012

REACTIONS (2)
  - Dyspnoea [Unknown]
  - Myocardial infarction [Unknown]
